FAERS Safety Report 21319451 (Version 1)
Quarter: 2022Q3

REPORT INFORMATION
  Report Type: Spontaneous
  Country: US (occurrence: US)
  Receive Date: 20220911
  Receipt Date: 20220911
  Transmission Date: 20221026
  Serious: No
  Sender: FDA-Public Use
  Company Number: US-SA-SAC20220901000792

PATIENT
  Age: 58 Year
  Sex: Female

DRUGS (8)
  1. DUPIXENT [Suspect]
     Active Substance: DUPILUMAB
     Indication: Dermatitis atopic
     Dosage: 300 MG, QOW
     Route: 058
     Dates: start: 20210911
  2. DAPSONE [Concomitant]
     Active Substance: DAPSONE
  3. DULOXETINE [Concomitant]
     Active Substance: DULOXETINE
  4. IMITREX [Concomitant]
     Active Substance: SUMATRIPTAN SUCCINATE
  5. SUMATRIPTAN [Concomitant]
     Active Substance: SUMATRIPTAN
  6. TRIAMCINOLONE [Concomitant]
     Active Substance: TRIAMCINOLONE
  7. METRONIDAZOLE [Concomitant]
     Active Substance: METRONIDAZOLE
  8. HYDROCORTISONE [Concomitant]
     Active Substance: HYDROCORTISONE

REACTIONS (1)
  - Injection site bruising [Not Recovered/Not Resolved]
